FAERS Safety Report 23626857 (Version 2)
Quarter: 2024Q1

REPORT INFORMATION
  Report Type: Report from Study
  Country: US (occurrence: US)
  Receive Date: 20240313
  Receipt Date: 20240328
  Transmission Date: 20240410
  Serious: Yes (Hospitalization)
  Sender: FDA-Public Use
  Company Number: US-INSMED, INC.-2024-00738-US

PATIENT
  Sex: Female

DRUGS (1)
  1. ARIKAYCE [Suspect]
     Active Substance: AMIKACIN
     Indication: Mycobacterium avium complex infection
     Dosage: 590 MILLIGRAM, QD
     Route: 055
     Dates: start: 20240215, end: 2024

REACTIONS (5)
  - Hospitalisation [Unknown]
  - Secretion discharge [Not Recovered/Not Resolved]
  - Cough [Not Recovered/Not Resolved]
  - Adverse event [Unknown]
  - Device issue [Unknown]

NARRATIVE: CASE EVENT DATE: 20240101
